FAERS Safety Report 9466599 (Version 1)
Quarter: 2013Q3

REPORT INFORMATION
  Report Type: Spontaneous
  Country: US (occurrence: US)
  Receive Date: 20130820
  Receipt Date: 20130820
  Transmission Date: 20140515
  Serious: Yes (Other)
  Sender: FDA-Public Use
  Company Number: US-TEVA-426901USA

PATIENT
  Age: 33 Year
  Sex: Female
  Weight: 52.66 kg

DRUGS (3)
  1. PARAGARD 380A [Suspect]
     Indication: CONTRACEPTION
     Route: 015
     Dates: start: 2007, end: 20130812
  2. SALBUTAMOL SULFATE [Concomitant]
     Indication: ASTHMA
     Dosage: PRO AIR
  3. BUDESONIDE W/FORMOTEROL FUMARATE [Concomitant]
     Indication: ASTHMA
     Dosage: SIMBACORT

REACTIONS (6)
  - Medical device complication [Recovered/Resolved]
  - Device dislocation [Recovered/Resolved]
  - Device expulsion [Recovered/Resolved]
  - Metrorrhagia [Unknown]
  - Pain [Not Recovered/Not Resolved]
  - Nausea [Unknown]
